FAERS Safety Report 5746825-1 (Version None)
Quarter: 2008Q2

REPORT INFORMATION
  Report Type: 
  Country: None (occurrence: None)
  Receive Date: 20080520
  Receipt Date: 20080520
  Transmission Date: 20081010
  Serious: Yes (Other)
  Sender: FDA-Public Use
  Company Number: None

PATIENT
  Age: 40 Year
  Sex: Female
  Weight: 102.0593 kg

DRUGS (1)
  1. PROVIGIL [Suspect]
     Indication: NARCOLEPSY
     Dosage: 200 MG Q AM PO
     Route: 048
     Dates: start: 20080517, end: 20080518

REACTIONS (7)
  - CHEST DISCOMFORT [None]
  - CONFUSIONAL STATE [None]
  - EMOTIONAL DISORDER [None]
  - HEADACHE [None]
  - NASAL CONGESTION [None]
  - RASH [None]
  - SOMNOLENCE [None]
